FAERS Safety Report 25826845 (Version 4)
Quarter: 2025Q4

REPORT INFORMATION
  Report Type: Report from Study
  Country: EU (occurrence: EU)
  Receive Date: 20250920
  Receipt Date: 20251019
  Transmission Date: 20260117
  Serious: Yes (Hospitalization)
  Sender: ABBVIE
  Company Number: EU-ABBVIE-6398908

PATIENT
  Age: 70 Year
  Sex: Female

DRUGS (11)
  1. CARBIDOPA [Suspect]
     Active Substance: CARBIDOPA
     Indication: Parkinson^s disease
     Dosage: 240 MG + 12 MG,?FREQUENCY: LO:0.9;HI:0.3;BA:0.25;LOW:0.19;EX:0.3, ?LAST ADMIN DATE: 2025
     Route: 058
     Dates: start: 20250730
  2. CARBIDOPA [Suspect]
     Active Substance: CARBIDOPA
     Dosage: 240 MG + 12 MG,?FREQUENCY: LO:2.4;HI:0.46;BA:0.36;LOW:0.26;EX:0.3
     Route: 058
     Dates: start: 20250721, end: 20250730
  3. CARBIDOPA [Suspect]
     Active Substance: CARBIDOPA
     Dosage: 240 MG + 12 MG,?FREQUENCY: HI:0.65;BA:0.6;LOW:0.5 (16H),
     Route: 058
     Dates: start: 20250901, end: 20250917
  4. CARBIDOPA [Suspect]
     Active Substance: CARBIDOPA
     Dosage: 240 MG + 12 MG,?FREQUENCY: HI:0.65;BA:0.6;LOW:0.5,?FIRST ADMIN DATE 2025
     Route: 058
     Dates: end: 20250901
  5. CARBIDOPA [Suspect]
     Active Substance: CARBIDOPA
     Dosage: 240 MG + 12 MG AT 16 HRS?FREQUENCY: HI:0.19;BA:0.15;LOW:0.15
     Route: 058
     Dates: start: 20250917, end: 20250924
  6. CARBIDOPA [Suspect]
     Active Substance: CARBIDOPA
     Dosage: 240 MG + 12 MG (16H)?FREQUENCY: HI:0.3;BA:0.25;LOW:0.22
     Route: 058
     Dates: start: 20250924, end: 20250924
  7. CARBIDOPA [Suspect]
     Active Substance: CARBIDOPA
     Dosage: 240 MG + 12 MG,?FREQUENCY: LOW DOSE 0.18CC/H, BASE DOSE 0.24CC/H AND HIGH DOSE 0.30CC/H.
     Route: 058
     Dates: start: 20250924
  8. REQUIP [Concomitant]
     Active Substance: ROPINIROLE HYDROCHLORIDE
     Indication: Product used for unknown indication
     Dosage: START DATE: BEFORE DUODOPA SUBCUTANEOUS
  9. OPICAPONE [Concomitant]
     Active Substance: OPICAPONE
     Indication: Product used for unknown indication
     Dosage: FORM STRENGTH: 50 MG,?START DATE: BEFORE DUODOPA SUBCUTANEOUS
  10. AMANTADINE HYDROCHLORIDE [Concomitant]
     Active Substance: AMANTADINE HYDROCHLORIDE
     Indication: Product used for unknown indication
     Dosage: TIME INTERVAL: 0.33333333 DAYS: FORM STRENGTH: 100 MG,?START DATE: BEFORE DUODOPA SUBCUTANEOUS
  11. SINEMET [Concomitant]
     Active Substance: CARBIDOPA\LEVODOPA
     Indication: Product used for unknown indication
     Dosage: TIME INTERVAL: 0.33333333 DAYS: 25/100,?7.5 TABLET,?START DATE: BEFORE DUODOPA SUBCUTANEOUS,?STOP...
     Dates: end: 2025

REACTIONS (9)
  - Dyskinesia [Recovering/Resolving]
  - Peripheral swelling [Recovered/Resolved]
  - Depressed mood [Recovered/Resolved]
  - On and off phenomenon [Recovering/Resolving]
  - Confusional state [Recovered/Resolved]
  - Hallucination, visual [Recovered/Resolved]
  - Off label use [Recovered/Resolved]
  - Dyskinesia [Recovered/Resolved]
  - Urinary tract infection [Recovered/Resolved]

NARRATIVE: CASE EVENT DATE: 20250701
